FAERS Safety Report 13421012 (Version 1)
Quarter: 2017Q2

REPORT INFORMATION
  Report Type: Spontaneous
  Country: DE (occurrence: DE)
  Receive Date: 20170410
  Receipt Date: 20170410
  Transmission Date: 20170830
  Serious: Yes (Death, Congenital Anomaly, Other)
  Sender: FDA-Public Use
  Company Number: DE-AUROBINDO-AUR-APL-2017-32138

PATIENT
  Age: 1 Day
  Sex: Female
  Weight: .72 kg

DRUGS (7)
  1. ASPIRIN. [Concomitant]
     Active Substance: ASPIRIN
     Indication: CONGESTIVE CARDIOMYOPATHY
     Dosage: 100 MG, DAILY
     Route: 064
     Dates: start: 20160330, end: 20160330
  2. VALSARTAN 80MG [Suspect]
     Active Substance: VALSARTAN
     Indication: CONGESTIVE CARDIOMYOPATHY
     Dosage: 80 MG, DAILY
     Route: 064
     Dates: start: 20151010, end: 20160330
  3. LASIX [Concomitant]
     Active Substance: FUROSEMIDE
     Indication: CONGESTIVE CARDIOMYOPATHY
     Dosage: 40 MG, DAILY
     Route: 064
     Dates: start: 20160330, end: 20160418
  4. OMEPRAZOLE. [Concomitant]
     Active Substance: OMEPRAZOLE
     Indication: PRODUCT USED FOR UNKNOWN INDICATION
     Dosage: 20 MG, DAILY
     Route: 064
     Dates: start: 20160330, end: 20160330
  5. BETAMETHASONE. [Concomitant]
     Active Substance: BETAMETHASONE
     Indication: MATERNAL THERAPY TO ENHANCE FOETAL LUNG MATURITY
     Dosage: UNK
     Route: 064
     Dates: start: 20160414, end: 20160414
  6. BISOPROLOL                         /00802602/ [Concomitant]
     Active Substance: BISOPROLOL
     Indication: CONGESTIVE CARDIOMYOPATHY
     Dosage: 5 MG, TWO TIMES A DAY
     Route: 064
     Dates: start: 20160330, end: 20160418
  7. KANRENOL [Concomitant]
     Active Substance: CANRENOATE POTASSIUM
     Indication: CONGESTIVE CARDIOMYOPATHY
     Dosage: 100 MG, DAILY
     Route: 064
     Dates: start: 20160330, end: 20160330

REACTIONS (5)
  - Persistent foetal circulation [Not Recovered/Not Resolved]
  - Angiotensin converting enzyme inhibitor foetopathy [Not Recovered/Not Resolved]
  - Bronchopulmonary dysplasia [Not Recovered/Not Resolved]
  - Death [Fatal]
  - Pulmonary hypoplasia [Not Recovered/Not Resolved]

NARRATIVE: CASE EVENT DATE: 20160418
